FAERS Safety Report 10059824 (Version 2)
Quarter: 2014Q2

REPORT INFORMATION
  Report Type: Spontaneous
  Country: US (occurrence: None)
  Receive Date: 20140402
  Receipt Date: 20140512
  Transmission Date: 20141212
  Serious: Yes (Other)
  Sender: FDA-Public Use
  Company Number: AUR-APL-2014-04012

PATIENT
  Age: 85 Year
  Sex: Male

DRUGS (2)
  1. CEFAZOLIN (CEFAZOLIN) [Suspect]
     Indication: ANTIBIOTIC PROPHYLAXIS
     Route: 042
  2. VANCOMYCIN (VANCOMYCIN) [Suspect]
     Indication: ANTIBIOTIC PROPHYLAXIS
     Route: 042

REACTIONS (7)
  - Sepsis [None]
  - Diarrhoea [None]
  - Abdominal pain lower [None]
  - Abdominal distension [None]
  - Clostridium difficile colitis [None]
  - Colonic pseudo-obstruction [None]
  - Haemodynamic instability [None]
